FAERS Safety Report 8543476-0 (Version None)
Quarter: 2012Q3

REPORT INFORMATION
  Report Type: 
  Country: None (occurrence: None)
  Receive Date: 20120727
  Receipt Date: 20120724
  Transmission Date: 20120928
  Serious: Yes (Death)
  Sender: FDA-Public Use
  Company Number: PHHY2012BR063869

PATIENT
  Sex: Male

DRUGS (5)
  1. FORMOTEROL FUMARATE [Suspect]
     Indication: CHRONIC OBSTRUCTIVE PULMONARY DISEASE
     Dosage: 2 DF, DAILY
  2. HYDROCHLOROTHIAZIDE [Concomitant]
     Indication: CARDIAC DISORDER
     Dosage: 1 DF, QD
     Route: 048
  3. DUTASTERIDE [Concomitant]
     Indication: PROSTATOMEGALY
     Dosage: AT THE DOSE OF 1 TABLET DAILY
     Route: 048
  4. AMIODARONE HYDROCHLORIDE [Concomitant]
     Indication: CARDIAC DISORDER
     Dosage: AT THE DOSE OF 3 TIMES WEEKLY
     Route: 048
  5. ESCITALOPRAM [Concomitant]
     Indication: DEPRESSION
     Dosage: 1 DF, QD
     Route: 048

REACTIONS (2)
  - BLOOD PRESSURE ABNORMAL [None]
  - DEATH [None]
